FAERS Safety Report 20704293 (Version 1)
Quarter: 2022Q2

REPORT INFORMATION
  Report Type: Spontaneous
  Country: US (occurrence: None)
  Receive Date: 20220412
  Receipt Date: 20220412
  Transmission Date: 20220721
  Serious: No
  Sender: FDA-Public Use
  Company Number: None

PATIENT
  Age: 69 Year
  Sex: Male

DRUGS (1)
  1. EVEROLIMUS [Suspect]
     Active Substance: EVEROLIMUS
     Dosage: FREQUENCY : DAILY;?
     Route: 048
     Dates: start: 202202

REACTIONS (8)
  - Fatigue [None]
  - Nausea [None]
  - Retching [None]
  - Myalgia [None]
  - Decreased appetite [None]
  - Sleep disorder [None]
  - Blood pressure increased [None]
  - Proteinuria [None]

NARRATIVE: CASE EVENT DATE: 20220412
